FAERS Safety Report 8794709 (Version 3)
Quarter: 2012Q4

REPORT INFORMATION
  Report Type: 
  Country: US (occurrence: US)
  Receive Date: 20120917
  Receipt Date: 20121026
  Transmission Date: 20130627
  Serious: No
  Sender: FDA-Public Use
  Company Number: US-ASTRAZENECA-2012SE64672

PATIENT
  Age: 75 Year
  Sex: Male
  Weight: 61.2 kg

DRUGS (21)
  1. SYMBICORT [Suspect]
     Indication: ASTHMA
     Dosage: 160/4.5 UG TWO TIMES A DAY
     Route: 055
     Dates: start: 20120824
  2. SYMBICORT [Suspect]
     Indication: CHRONIC OBSTRUCTIVE PULMONARY DISEASE
     Dosage: 160/4.5 UG TWO TIMES A DAY
     Route: 055
     Dates: start: 20120824
  3. NEXIUM [Suspect]
     Indication: GASTROOESOPHAGEAL REFLUX DISEASE
     Route: 048
  4. NEXIUM [Suspect]
     Indication: ABDOMINAL DISCOMFORT
     Route: 048
  5. ZESTRIL [Suspect]
     Indication: CARDIAC DISORDER
     Route: 048
  6. ASPIRIN [Concomitant]
     Indication: CARDIAC DISORDER
  7. ASPIRIN [Concomitant]
     Indication: ANTICOAGULANT THERAPY
  8. LISINOPRIL [Concomitant]
     Indication: CARDIAC DISORDER
  9. SYNTHROID [Concomitant]
     Indication: THYROID DISORDER
  10. SYNTHROID [Concomitant]
     Indication: HYPOTHYROIDISM
  11. DILTALAZAM [Concomitant]
     Indication: CARDIAC DISORDER
  12. ALBUTEROL INHALER [Concomitant]
     Indication: ASTHMA
  13. ALBUTEROL INHALER [Concomitant]
     Indication: CHRONIC OBSTRUCTIVE PULMONARY DISEASE
  14. LORATIDINE [Concomitant]
     Indication: MULTIPLE ALLERGIES
  15. BACLOFEN [Concomitant]
     Indication: MUSCLE SPASMS
  16. VICODIN [Concomitant]
     Indication: PAIN
  17. NASONEX [Concomitant]
     Indication: MULTIPLE ALLERGIES
  18. B12 [Concomitant]
  19. LASIX [Concomitant]
     Indication: HYPERTENSION
  20. NITROGLYCERINE [Concomitant]
     Indication: ANGINA UNSTABLE
  21. ISOSORBIDE [Concomitant]
     Indication: HYPERTENSION

REACTIONS (7)
  - Hypertension [Unknown]
  - Throat irritation [Unknown]
  - Headache [Unknown]
  - Muscle spasms [Unknown]
  - Oropharyngeal pain [Not Recovered/Not Resolved]
  - Oropharyngeal pain [Not Recovered/Not Resolved]
  - Muscle spasms [Unknown]
